FAERS Safety Report 20032689 (Version 2)
Quarter: 2021Q4

REPORT INFORMATION
  Report Type: Spontaneous
  Country: US (occurrence: US)
  Receive Date: 20211104
  Receipt Date: 20211111
  Transmission Date: 20220303
  Serious: No
  Sender: FDA-Public Use
  Company Number: US-BEH-2021137828

PATIENT
  Sex: Female

DRUGS (2)
  1. HIZENTRA [Suspect]
     Active Substance: HUMAN IMMUNOGLOBULIN G
     Indication: Immunodeficiency common variable
     Dosage: 20 GRAM, QW
     Route: 042
     Dates: start: 202101
  2. HIZENTRA [Suspect]
     Active Substance: HUMAN IMMUNOGLOBULIN G
     Dosage: UNK
     Route: 042

REACTIONS (8)
  - Injection site urticaria [Recovered/Resolved]
  - Pruritus [Recovered/Resolved]
  - Pruritus [Unknown]
  - Recalled product administered [Unknown]
  - Erythema [Unknown]
  - Recalled product administered [Unknown]
  - No adverse event [Unknown]
  - Incorrect route of product administration [Unknown]
